FAERS Safety Report 17494837 (Version 1)
Quarter: 2020Q1

REPORT INFORMATION
  Report Type: Spontaneous
  Country: US (occurrence: US)
  Receive Date: 20200304
  Receipt Date: 20200304
  Transmission Date: 20200409
  Serious: No
  Sender: FDA-Public Use
  Company Number: US-MACLEODS PHARMACEUTICALS US LTD-MAC2020025467

PATIENT

DRUGS (1)
  1. ARIPIPRAZOLE 2MG TABLET [Suspect]
     Active Substance: ARIPIPRAZOLE
     Indication: AUTISM SPECTRUM DISORDER
     Dosage: 2 MILLIGRAM, QD
     Route: 048
     Dates: start: 20200216

REACTIONS (2)
  - Tongue movement disturbance [Unknown]
  - Speech disorder [Unknown]
